FAERS Safety Report 10410988 (Version 1)
Quarter: 2014Q3

REPORT INFORMATION
  Report Type: Spontaneous
  Country: US (occurrence: None)
  Receive Date: 20140822
  Receipt Date: 20140822
  Transmission Date: 20150326
  Serious: Yes (Hospitalization)
  Sender: FDA-Public Use
  Company Number: 2375490

PATIENT
  Age: 13 Year
  Sex: Male

DRUGS (7)
  1. ETOPOSIDE. [Suspect]
     Active Substance: ETOPOSIDE
     Indication: PRECURSOR B-LYMPHOBLASTIC LYMPHOMA STAGE IV
     Dates: start: 20140211, end: 20140507
  2. FILGRASTIM [Concomitant]
     Active Substance: FILGRASTIM
  3. CLOFARABINE [Suspect]
     Active Substance: CLOFARABINE
     Indication: PRECURSOR B-LYMPHOBLASTIC LYMPHOMA STAGE IV
     Dates: start: 20140211, end: 20140420
  4. CYCLOPHOSPHAMIDE. [Suspect]
     Active Substance: CYCLOPHOSPHAMIDE
     Indication: PRECURSOR B-LYMPHOBLASTIC LYMPHOMA STAGE IV
     Dates: start: 20140211, end: 20140420
  5. VORICONAZOLE. [Concomitant]
     Active Substance: VORICONAZOLE
  6. PEGASPARGASE [Suspect]
     Active Substance: PEGASPARGASE
     Indication: PRECURSOR B-LYMPHOBLASTIC LYMPHOMA STAGE IV
     Dates: start: 20140211
  7. VINCRISTINE SULFATE INJECTION, USP, 1MG/ML (VINCRISTINE SULFATE) [Suspect]
     Active Substance: VINCRISTINE SULFATE
     Indication: PRECURSOR B-LYMPHOBLASTIC LYMPHOMA STAGE IV
     Dates: start: 20140211, end: 20140507

REACTIONS (2)
  - Pneumonia fungal [None]
  - Hypotension [None]

NARRATIVE: CASE EVENT DATE: 20140509
